FAERS Safety Report 6084433-6 (Version None)
Quarter: 2009Q1

REPORT INFORMATION
  Report Type: 
  Country: None (occurrence: None)
  Receive Date: 20090219
  Receipt Date: 20090212
  Transmission Date: 20090719
  Serious: Yes (Other)
  Sender: FDA-Public Use
  Company Number: B0559944A

PATIENT
  Age: 42 Year
  Sex: Male

DRUGS (3)
  1. AVAMYS [Suspect]
     Route: 045
     Dates: start: 20090210, end: 20090210
  2. ATROVENT [Concomitant]
     Indication: ASTHMA
  3. VENTOLIN [Concomitant]
     Indication: ASTHMA

REACTIONS (1)
  - ASTHMA [None]
